FAERS Safety Report 13724795 (Version 1)
Quarter: 2017Q3

REPORT INFORMATION
  Report Type: Spontaneous
  Country: US (occurrence: US)
  Receive Date: 20170706
  Receipt Date: 20170706
  Transmission Date: 20171127
  Serious: Yes (Other)
  Sender: FDA-Public Use
  Company Number: US-FRESENIUS KABI-FK201705763

PATIENT
  Age: 59 Year
  Sex: Female

DRUGS (2)
  1. ALGENPANTUCEL-L [Concomitant]
     Indication: PANCREATIC CARCINOMA
     Route: 065
  2. GEMCITABINE [Suspect]
     Active Substance: GEMCITABINE\GEMCITABINE HYDROCHLORIDE
     Indication: PANCREATIC CARCINOMA
     Route: 065

REACTIONS (1)
  - Thrombotic microangiopathy [Recovered/Resolved]
